FAERS Safety Report 16451828 (Version 1)
Quarter: 2019Q2

REPORT INFORMATION
  Report Type: Spontaneous
  Country: RU (occurrence: RU)
  Receive Date: 20190619
  Receipt Date: 20190619
  Transmission Date: 20190711
  Serious: Yes (Hospitalization)
  Sender: FDA-Public Use
  Company Number: RU-BAYER-2019-111866

PATIENT
  Age: 36 Year
  Sex: Female

DRUGS (3)
  1. JEANINE [Suspect]
     Active Substance: DIENOGEST\ETHINYL ESTRADIOL
     Dosage: UNK
     Route: 048
     Dates: start: 201812
  2. QLAIRA [Suspect]
     Active Substance: DIENOGEST\ESTRADIOL VALERATE
     Route: 048
  3. JEANINE [Suspect]
     Active Substance: DIENOGEST\ETHINYL ESTRADIOL
     Dosage: UNK
     Route: 048
     Dates: start: 201805, end: 201807

REACTIONS (6)
  - Amenorrhoea [None]
  - Inappropriate schedule of product administration [None]
  - Ovarian cyst [None]
  - Acne [Recovered/Resolved]
  - Pelvic pain [None]
  - Off label use [None]

NARRATIVE: CASE EVENT DATE: 201805
